FAERS Safety Report 11129980 (Version 1)
Quarter: 2015Q2

REPORT INFORMATION
  Report Type: Spontaneous
  Country: BR (occurrence: BR)
  Receive Date: 20150521
  Receipt Date: 20150521
  Transmission Date: 20150821
  Serious: Yes (Death, Other)
  Sender: FDA-Public Use
  Company Number: PHHY2012BR137697

PATIENT
  Age: 64 Year
  Sex: Male

DRUGS (9)
  1. ACETIN//ACETYLSALICYLIC ACID [Concomitant]
     Indication: PRODUCT USED FOR UNKNOWN INDICATION
     Route: 065
  2. CARVEDILOL. [Concomitant]
     Active Substance: CARVEDILOL
     Indication: PRODUCT USED FOR UNKNOWN INDICATION
     Route: 065
  3. SERTRALINE [Concomitant]
     Active Substance: SERTRALINE HYDROCHLORIDE
     Indication: PRODUCT USED FOR UNKNOWN INDICATION
     Route: 065
  4. SANDOSTATIN LAR DEPOT [Suspect]
     Active Substance: OCTREOTIDE ACETATE
     Indication: GASTRIC NEOPLASM
     Dosage: 20 MG, QMO
     Route: 065
     Dates: start: 200911
  5. OMEPRAZOLE. [Concomitant]
     Active Substance: OMEPRAZOLE
     Indication: PRODUCT USED FOR UNKNOWN INDICATION
     Route: 065
  6. SANDOSTATIN LAR DEPOT [Suspect]
     Active Substance: OCTREOTIDE ACETATE
     Dosage: 30 MG, QMO
     Route: 065
     Dates: start: 20100827, end: 20110906
  7. SIMVASTATIN. [Concomitant]
     Active Substance: SIMVASTATIN
     Indication: PRODUCT USED FOR UNKNOWN INDICATION
     Route: 065
  8. EVEROLIMUS [Suspect]
     Active Substance: EVEROLIMUS
     Indication: PRODUCT USED FOR UNKNOWN INDICATION
     Dosage: 10 MG, QD
     Route: 065
     Dates: start: 20100827
  9. EVEROLIMUS [Suspect]
     Active Substance: EVEROLIMUS
     Dosage: 7.5 MG, 10 MG AND 5 MG, DAILY, EVERY OTHER DAY
     Route: 065
     Dates: end: 20110906

REACTIONS (22)
  - Lymphadenopathy [Unknown]
  - Metastases to bone [Unknown]
  - Abdominal distension [Unknown]
  - Decreased appetite [Recovering/Resolving]
  - Off label use [Unknown]
  - Hepatic neoplasm [Fatal]
  - Metastases to liver [Unknown]
  - Metastases to peritoneum [Unknown]
  - Diarrhoea [Recovering/Resolving]
  - Abdominal pain [Recovered/Resolved]
  - Hepatomegaly [Recovering/Resolving]
  - Urinary tract infection [Recovered/Resolved]
  - Pneumonia bacterial [Recovering/Resolving]
  - Infection [Recovering/Resolving]
  - Cholestatic liver injury [Fatal]
  - Gastrointestinal toxicity [Unknown]
  - Fatigue [Recovered/Resolved]
  - Oral candidiasis [Recovering/Resolving]
  - Ascites [Recovering/Resolving]
  - Malignant neoplasm progression [Unknown]
  - Musculoskeletal pain [Unknown]
  - Oedema peripheral [Recovering/Resolving]

NARRATIVE: CASE EVENT DATE: 201003
